FAERS Safety Report 14609866 (Version 2)
Quarter: 2018Q1

REPORT INFORMATION
  Report Type: Spontaneous
  Country: US (occurrence: US)
  Receive Date: 20180307
  Receipt Date: 20180309
  Transmission Date: 20180509
  Serious: Yes (Hospitalization)
  Sender: FDA-Public Use
  Company Number: US-PFIZER INC-2018091584

PATIENT
  Age: 55 Year
  Sex: Female
  Weight: 59.87 kg

DRUGS (1)
  1. TORISEL [Suspect]
     Active Substance: TEMSIROLIMUS
     Indication: CHEMOTHERAPY
     Dosage: UNK
     Route: 042
     Dates: start: 2017, end: 2017

REACTIONS (1)
  - Pulmonary thrombosis [Not Recovered/Not Resolved]
